FAERS Safety Report 10079103 (Version 1)
Quarter: 2014Q2

REPORT INFORMATION
  Report Type: Spontaneous
  Country: US (occurrence: None)
  Receive Date: 20140414
  Receipt Date: 20140414
  Transmission Date: 20141212
  Serious: Yes (Hospitalization)
  Sender: FDA-Public Use
  Company Number: None

PATIENT
  Age: 45 Year
  Sex: Female
  Weight: 77.1 kg

DRUGS (1)
  1. VANCOMYCIN [Suspect]
     Indication: MASTOIDITIS
     Dosage: 1.5GM, ONCE, INTRAVENOUS
     Dates: start: 20140413, end: 20140413

REACTIONS (3)
  - Rash [None]
  - Oropharyngeal pain [None]
  - Wheezing [None]
